FAERS Safety Report 10936325 (Version 1)
Quarter: 2015Q1

REPORT INFORMATION
  Report Type: Spontaneous
  Country: US (occurrence: None)
  Receive Date: 20150320
  Receipt Date: 20150320
  Transmission Date: 20150721
  Serious: Yes (Life-Threatening, Hospitalization)
  Sender: FDA-Public Use
  Company Number: None

PATIENT
  Age: 59 Year
  Sex: Male
  Weight: 50.8 kg

DRUGS (11)
  1. MIRTAZAPINE. [Concomitant]
     Active Substance: MIRTAZAPINE
  2. KALETRA [Concomitant]
     Active Substance: LOPINAVIR\RITONAVIR
  3. ASPIRIN. [Concomitant]
     Active Substance: ASPIRIN
  4. LISINOPRIL. [Concomitant]
     Active Substance: LISINOPRIL
  5. LYRICA [Concomitant]
     Active Substance: PREGABALIN
  6. ALLOPURINOL. [Concomitant]
     Active Substance: ALLOPURINOL
  7. HARVONI [Suspect]
     Active Substance: LEDIPASVIR\SOFOSBUVIR
     Indication: HEPATITIS C
     Dosage: 1 TABLET
     Route: 048
     Dates: start: 20150106, end: 20150126
  8. PHENERGAN [Concomitant]
     Active Substance: PROMETHAZINE HYDROCHLORIDE
  9. LEVOTHROID [Concomitant]
     Active Substance: LEVOTHYROXINE SODIUM
  10. TRUVADA [Concomitant]
     Active Substance: EMTRICITABINE\TENOFOVIR DISOPROXIL FUMARATE
  11. VALACYCLOVIR [Concomitant]
     Active Substance: VALACYCLOVIR HYDROCHLORIDE

REACTIONS (10)
  - Abdominal discomfort [None]
  - Decreased appetite [None]
  - Diarrhoea [None]
  - Asthenia [None]
  - Chills [None]
  - Nausea [None]
  - Hyperhidrosis [None]
  - Acute hepatic failure [None]
  - Vomiting [None]
  - Acute myocardial infarction [None]

NARRATIVE: CASE EVENT DATE: 20150124
